FAERS Safety Report 11138544 (Version 3)
Quarter: 2015Q2

REPORT INFORMATION
  Report Type: Spontaneous
  Country: IT (occurrence: IT)
  Receive Date: 20150527
  Receipt Date: 20150610
  Transmission Date: 20150821
  Serious: Yes (Other)
  Sender: FDA-Public Use
  Company Number: IT-ROCHE-1582400

PATIENT
  Age: 65 Year
  Sex: Female
  Weight: 105 kg

DRUGS (6)
  1. LETROZOLE. [Concomitant]
     Active Substance: LETROZOLE
  2. AVASTIN [Interacting]
     Active Substance: BEVACIZUMAB
     Dosage: DAY 1, 5TH CYCLE
     Route: 042
     Dates: start: 20150522
  3. AVASTIN [Suspect]
     Active Substance: BEVACIZUMAB
     Indication: BREAST CANCER
     Route: 042
     Dates: start: 20141112
  4. PRADAXA [Interacting]
     Active Substance: DABIGATRAN ETEXILATE MESYLATE
     Indication: PRODUCT USED FOR UNKNOWN INDICATION
     Route: 065
  5. AVASTIN [Interacting]
     Active Substance: BEVACIZUMAB
     Dosage: DAY 1, 5TH CYCLE
     Route: 042
     Dates: start: 20150320
  6. AVASTIN [Interacting]
     Active Substance: BEVACIZUMAB
     Dosage: DAY 15, 5TH CYCLE
     Route: 042
     Dates: start: 20150403

REACTIONS (2)
  - Drug interaction [Unknown]
  - Proteinuria [Recovered/Resolved]

NARRATIVE: CASE EVENT DATE: 20150304
